FAERS Safety Report 8623552-4 (Version None)
Quarter: 2012Q3

REPORT INFORMATION
  Report Type: 
  Country: None (occurrence: None)
  Receive Date: 20120827
  Receipt Date: 20120815
  Transmission Date: 20120928
  Serious: Yes (Other)
  Sender: FDA-Public Use
  Company Number: US-009507513-1208USA006854

PATIENT

DRUGS (1)
  1. FOSAMAX [Suspect]
     Indication: BONE DENSITY DECREASED
     Dosage: UNK
     Dates: start: 20030101

REACTIONS (16)
  - PANCREATITIS [None]
  - PAIN IN EXTREMITY [None]
  - OSTEONECROSIS [None]
  - TIBIA FRACTURE [None]
  - HYPERTENSION [None]
  - CONJUNCTIVITIS [None]
  - FEMUR FRACTURE [None]
  - CORONARY ARTERY DISEASE [None]
  - DIABETES MELLITUS [None]
  - INTRAMEDULLARY ROD INSERTION [None]
  - OSTEOARTHRITIS [None]
  - SPINAL COLUMN STENOSIS [None]
  - NEUROPATHY PERIPHERAL [None]
  - ANKLE FRACTURE [None]
  - ANAEMIA OF CHRONIC DISEASE [None]
  - OSTEOPOROSIS [None]
